FAERS Safety Report 5391523-X (Version None)
Quarter: 2007Q3

REPORT INFORMATION
  Report Type: 
  Country: None (occurrence: None)
  Receive Date: 20070719
  Receipt Date: 20070709
  Transmission Date: 20080115
  Serious: Yes (Other)
  Sender: FDA-Public Use
  Company Number: US-PFIZER INC-2006021434

PATIENT
  Sex: Male
  Weight: 99.8 kg

DRUGS (4)
  1. XALATAN [Suspect]
     Indication: GLAUCOMA
     Dosage: TEXT:UNKNOWN-FREQ:TWICE DAILY IN BOTH EYES
     Route: 047
  2. TIMOPTIC [Concomitant]
     Route: 065
  3. IMIPRAMINE [Concomitant]
     Route: 065
  4. ATENOLOL [Concomitant]
     Route: 065

REACTIONS (3)
  - CORNEAL GRAFT REJECTION [None]
  - INAPPROPRIATE SCHEDULE OF DRUG ADMINISTRATION [None]
  - OCULAR HYPERAEMIA [None]
